FAERS Safety Report 8826608 (Version 1)
Quarter: 2012Q4

REPORT INFORMATION
  Report Type: 
  Country: US (occurrence: US)
  Receive Date: 20121005
  Receipt Date: 20121005
  Transmission Date: 20130627
  Serious: Yes (Hospitalization)
  Sender: FDA-Public Use
  Company Number: CHPA2012US020688

PATIENT
  Age: 64 Year
  Sex: Female

DRUGS (2)
  1. MAALOX ADV MAXIMUM STRENGTH ANTACID/ANTIGAS [Suspect]
     Dosage: 2 TSP, QD or QOD
     Route: 048
     Dates: start: 201106, end: 20120927
  2. DRUG THERAPY NOS [Concomitant]
     Dosage: Unk, Unk

REACTIONS (3)
  - Gastritis [Recovered/Resolved]
  - Abdominal pain upper [Recovered/Resolved]
  - Diarrhoea [Recovered/Resolved]
